FAERS Safety Report 18546916 (Version 1)
Quarter: 2020Q4

REPORT INFORMATION
  Report Type: Spontaneous
  Country: ES (occurrence: ES)
  Receive Date: 20201125
  Receipt Date: 20201125
  Transmission Date: 20210114
  Serious: Yes (Other)
  Sender: FDA-Public Use
  Company Number: ES-GILEAD-2020-0505891

PATIENT
  Sex: Male
  Weight: 102 kg

DRUGS (3)
  1. REMDESIVIR. [Suspect]
     Active Substance: REMDESIVIR
     Indication: COVID-19 PNEUMONIA
     Route: 042
     Dates: start: 20201022, end: 20201026
  2. IVERMECTIN. [Suspect]
     Active Substance: IVERMECTIN
     Indication: PROPHYLAXIS
     Route: 048
     Dates: start: 20201022, end: 20201022
  3. ZINFORO [Suspect]
     Active Substance: CEFTAROLINE FOSAMIL
     Indication: PNEUMONIA
     Route: 042
     Dates: start: 20201022, end: 20201026

REACTIONS (1)
  - Hepatitis [Recovering/Resolving]

NARRATIVE: CASE EVENT DATE: 20201024
